FAERS Safety Report 10267884 (Version 1)
Quarter: 2014Q2

REPORT INFORMATION
  Report Type: Spontaneous
  Country: GB (occurrence: GB)
  Receive Date: 20140630
  Receipt Date: 20140630
  Transmission Date: 20141212
  Serious: Yes (Hospitalization, Other)
  Sender: FDA-Public Use
  Company Number: GB-TEVA-489868ISR

PATIENT
  Sex: Female

DRUGS (3)
  1. CLARITHROMYCIN [Suspect]
     Indication: INFECTION
     Route: 065
     Dates: start: 20120717, end: 20120728
  2. CHLORPHENAMINE [Suspect]
     Indication: INFECTION
     Route: 065
     Dates: start: 20120717, end: 20120728
  3. ERYTHROMYCIN [Suspect]
     Indication: INFECTION
     Route: 065
     Dates: start: 20120717, end: 20120728

REACTIONS (5)
  - Gastroenteritis [Unknown]
  - Abdominal discomfort [Unknown]
  - Malaise [Unknown]
  - Pyrexia [Unknown]
  - Weight decreased [Unknown]
